FAERS Safety Report 4630493-6 (Version None)
Quarter: 2005Q2

REPORT INFORMATION
  Report Type: 
  Country: None (occurrence: None)
  Receive Date: 20050406
  Receipt Date: 20050318
  Transmission Date: 20051028
  Serious: Yes (Other)
  Sender: FDA-Public Use
  Company Number: USA050393537

PATIENT
  Age: 54 Year
  Sex: Male

DRUGS (1)
  1. XIGRIS [Suspect]
     Indication: SEPTIC SHOCK

REACTIONS (1)
  - INTERNATIONAL NORMALISED RATIO INCREASED [None]
